FAERS Safety Report 9773206 (Version 1)
Quarter: 2013Q4

REPORT INFORMATION
  Report Type: Spontaneous
  Country: AU (occurrence: AU)
  Receive Date: 20131219
  Receipt Date: 20131219
  Transmission Date: 20140711
  Serious: Yes (Other)
  Sender: FDA-Public Use
  Company Number: AU-PFIZER INC-2013359944

PATIENT
  Sex: Female

DRUGS (5)
  1. LYRICA [Suspect]
     Indication: OSTEOPOROSIS
     Dosage: 300 MG, UNK
  2. CELEBREX [Suspect]
     Indication: OSTEOPOROSIS
     Dosage: 200 MG, UNK
  3. FRUSEMIDE [Concomitant]
     Indication: SWELLING
  4. MAGNESIUM [Concomitant]
     Indication: MUSCLE SPASMS
  5. VITAMIN B12 [Concomitant]
     Indication: PARAESTHESIA

REACTIONS (15)
  - Off label use [Unknown]
  - Joint swelling [Unknown]
  - Local swelling [Unknown]
  - Gait disturbance [Unknown]
  - Muscle spasms [Unknown]
  - Oliguria [Unknown]
  - Paraesthesia [Unknown]
  - Erythema [Unknown]
  - Feeling hot [Unknown]
  - Feeling abnormal [Unknown]
  - Dry skin [Unknown]
  - Pruritus [Unknown]
  - Headache [Unknown]
  - Nausea [Unknown]
  - Drug ineffective for unapproved indication [Unknown]
